FAERS Safety Report 5356958-X (Version None)
Quarter: 2007Q2

REPORT INFORMATION
  Report Type: 
  Country: None (occurrence: None)
  Receive Date: 20070530
  Receipt Date: 20070315
  Transmission Date: 20071010
  Serious: Yes (Other)
  Sender: FDA-Public Use
  Company Number: US200701004371

PATIENT
  Age: 53 Year
  Sex: Male
  Weight: 79.4 kg

DRUGS (2)
  1. ZYPREXA [Suspect]
     Dosage: 10 MG, ORAL
     Route: 048
     Dates: start: 19980101, end: 20050101
  2. RISPERDAL [Concomitant]

REACTIONS (5)
  - BLOOD CHOLESTEROL ABNORMAL [None]
  - BLOOD TRIGLYCERIDES INCREASED [None]
  - DIABETES MELLITUS [None]
  - HYPERGLYCAEMIA [None]
  - PANCREATITIS [None]
